FAERS Safety Report 9490483 (Version 2)
Quarter: 2013Q4

REPORT INFORMATION
  Report Type: Spontaneous
  Country: US (occurrence: US)
  Receive Date: 20130830
  Receipt Date: 20131204
  Transmission Date: 20140711
  Serious: Yes (Other)
  Sender: FDA-Public Use
  Company Number: US-SHIRE-ALL1-2013-05844

PATIENT
  Age: 31 Year
  Sex: Female
  Weight: 65.4 kg

DRUGS (1)
  1. 433 (CARBAMAZEPINE) [Suspect]
     Indication: EPILEPSY
     Dosage: 600 MG, 2X/DAY:BID
     Route: 048

REACTIONS (2)
  - Abortion spontaneous [Recovered/Resolved with Sequelae]
  - Exposure during pregnancy [Recovered/Resolved with Sequelae]
